FAERS Safety Report 12263350 (Version 2)
Quarter: 2019Q4

REPORT INFORMATION
  Report Type: Spontaneous
  Country: US (occurrence: US)
  Receive Date: 20160413
  Receipt Date: 20191114
  Transmission Date: 20200122
  Serious: Yes (Other)
  Sender: FDA-Public Use
  Company Number: US-PFIZER INC-2016208483

PATIENT
  Age: 54 Year
  Sex: Male

DRUGS (9)
  1. VITAMIN B12 [Concomitant]
     Active Substance: CYANOCOBALAMIN
     Indication: SKIN DISORDER PROPHYLAXIS
     Dosage: UNK
     Dates: start: 2015
  2. VIAGRA [Suspect]
     Active Substance: SILDENAFIL CITRATE
     Indication: ERECTILE DYSFUNCTION
     Dosage: UNK, REGULARLY
     Route: 048
     Dates: end: 2015
  3. CIALIS [Suspect]
     Active Substance: TADALAFIL
     Indication: ERECTILE DYSFUNCTION
     Dosage: 10 MG, AS NEEDED
     Route: 048
     Dates: start: 20160430, end: 2016
  4. TYLENOL [Concomitant]
     Active Substance: ACETAMINOPHEN
     Indication: NASOPHARYNGITIS
     Dosage: UNK
     Dates: start: 2014
  5. VITAMIN D [Concomitant]
     Active Substance: VITAMIN D NOS
     Indication: SKIN DISORDER PROPHYLAXIS
     Dosage: UNK
     Dates: start: 2015
  6. VIAGRA [Suspect]
     Active Substance: SILDENAFIL CITRATE
     Dosage: 20 MG, AS NEEDED
     Route: 048
     Dates: start: 20140917, end: 201410
  7. CIALIS [Suspect]
     Active Substance: TADALAFIL
     Dosage: 10 MG, AS NEEDED
     Route: 048
     Dates: start: 20170404, end: 2018
  8. VIAGRA [Suspect]
     Active Substance: SILDENAFIL CITRATE
     Dosage: 20 MG, AS NEEDED (CUT IN HALF)
     Route: 048
     Dates: start: 2000, end: 2016
  9. ASPIRIN. [Concomitant]
     Active Substance: ASPIRIN
     Indication: ANALGESIC THERAPY
     Dosage: UNK
     Dates: start: 2014

REACTIONS (6)
  - Emotional distress [Unknown]
  - Malignant melanoma in situ [Unknown]
  - Anxiety [Unknown]
  - Lentigo maligna [Unknown]
  - Superficial spreading melanoma stage unspecified [Unknown]
  - Malignant melanoma stage I [Unknown]

NARRATIVE: CASE EVENT DATE: 20020820
